FAERS Safety Report 4460898-8 (Version None)
Quarter: 2004Q3

REPORT INFORMATION
  Report Type: 
  Country: None (occurrence: None)
  Receive Date: 20040928
  Receipt Date: 20040608
  Transmission Date: 20050211
  Serious: No
  Sender: FDA-Public Use
  Company Number: US-GLAXOSMITHKLINE-A0513918A

PATIENT
  Age: 52 Year
  Sex: Female

DRUGS (8)
  1. ADVAIR DISKUS 100/50 [Suspect]
     Indication: ASTHMA
     Route: 055
     Dates: start: 20031101, end: 20040601
  2. SINGULAIR [Concomitant]
     Indication: ASTHMA
     Dosage: 1TAB AT NIGHT
     Route: 048
  3. ALLEGRA-D [Concomitant]
     Dosage: 1TAB TWICE PER DAY
     Route: 048
     Dates: start: 20031101
  4. ALBUTEROL [Concomitant]
     Indication: ASTHMA
  5. FLONASE [Concomitant]
  6. QUININE [Concomitant]
  7. SYNTHROID [Concomitant]
  8. CLONOPIN [Concomitant]

REACTIONS (2)
  - DISCOMFORT [None]
  - ORAL CANDIDIASIS [None]
